FAERS Safety Report 4439669-4 (Version None)
Quarter: 2004Q3

REPORT INFORMATION
  Report Type: 
  Country: None (occurrence: None)
  Receive Date: 20040830
  Receipt Date: 20040823
  Transmission Date: 20050211
  Serious: Yes (Other)
  Sender: FDA-Public Use
  Company Number: 2004229609US

PATIENT
  Age: 58 Year
  Sex: Female

DRUGS (4)
  1. PROVERA [Suspect]
     Dates: start: 19950101, end: 19991001
  2. PREMPRO [Suspect]
     Dates: start: 19991001, end: 20010929
  3. PREMARIN [Suspect]
     Dates: start: 19950101, end: 19991001
  4. PREMARIN [Suspect]
     Dates: start: 20010929, end: 20020501

REACTIONS (1)
  - BREAST CANCER FEMALE [None]
